FAERS Safety Report 14754241 (Version 1)
Quarter: 2018Q2

REPORT INFORMATION
  Report Type: Spontaneous
  Country: US (occurrence: US)
  Receive Date: 20180412
  Receipt Date: 20180412
  Transmission Date: 20180711
  Serious: Yes (Life-Threatening, Hospitalization)
  Sender: FDA-Public Use
  Company Number: US-VIFOR (INTERNATIONAL) INC.-VIT-2018-03414

PATIENT
  Age: 70 Year
  Sex: Female
  Weight: 81 kg

DRUGS (3)
  1. MIRCERA [Suspect]
     Active Substance: METHOXY POLYETHYLENE GLYCOL-EPOETIN BETA
     Route: 040
     Dates: start: 20180328
  2. MIRCERA [Suspect]
     Active Substance: METHOXY POLYETHYLENE GLYCOL-EPOETIN BETA
     Indication: NEPHROGENIC ANAEMIA
     Route: 040
     Dates: start: 20180314
  3. MIRCERA [Suspect]
     Active Substance: METHOXY POLYETHYLENE GLYCOL-EPOETIN BETA
     Route: 040
     Dates: start: 20180228

REACTIONS (6)
  - Heart rate increased [Unknown]
  - Blood pressure increased [Unknown]
  - Moaning [Unknown]
  - Cyanosis [Unknown]
  - Seizure [Unknown]
  - Unresponsive to stimuli [Unknown]

NARRATIVE: CASE EVENT DATE: 20180328
